FAERS Safety Report 6759020-4 (Version None)
Quarter: 2010Q2

REPORT INFORMATION
  Report Type: 
  Country: None (occurrence: None)
  Receive Date: 20100607
  Receipt Date: 20100602
  Transmission Date: 20101027
  Serious: No
  Sender: FDA-Public Use
  Company Number: US-B.I. PHARMACEUTICALS,INC./RIDGEFIELD-2010-BP-06198BP

PATIENT
  Age: 67 Year
  Sex: Female

DRUGS (2)
  1. MICARDIS HCT [Suspect]
     Indication: HYPERTENSION
     Route: 048
     Dates: start: 20100528, end: 20100530
  2. ATENOLOL [Concomitant]
     Indication: HYPERTENSION

REACTIONS (4)
  - ANXIETY [None]
  - CHEST DISCOMFORT [None]
  - DYSPNOEA [None]
  - HEART RATE IRREGULAR [None]
